FAERS Safety Report 8183659 (Version 3)
Quarter: 2013Q3

REPORT INFORMATION
  Report Type: Report from Study
  Country: BE (occurrence: BE)
  Receive Date: 20111017
  Receipt Date: 20130821
  Transmission Date: 20140515
  Serious: Yes (Death)
  Sender: FDA-Public Use
  Company Number: PHHO2011BE17190

PATIENT
  Age: 58 Year
  Sex: Female

DRUGS (4)
  1. CGS 20267 [Suspect]
     Indication: BREAST CANCER
     Dosage: 2.5 MG, QD
     Route: 048
     Dates: start: 20091218
  2. ANASTROZOLE [Concomitant]
     Dosage: UNK
     Dates: start: 20041001, end: 20091204
  3. VENLAFAXINE [Concomitant]
     Indication: DEPRESSION
     Dosage: UNK
     Dates: start: 200811
  4. ALPRAZOLAM [Concomitant]
     Indication: DEPRESSION
     Dosage: UNK
     Dates: start: 200811

REACTIONS (1)
  - Completed suicide [Fatal]
